FAERS Safety Report 19718947 (Version 1)
Quarter: 2021Q3

REPORT INFORMATION
  Report Type: Spontaneous
  Country: US (occurrence: US)
  Receive Date: 20210818
  Receipt Date: 20210818
  Transmission Date: 20211014
  Serious: Yes (Hospitalization)
  Sender: FDA-Public Use
  Company Number: None

PATIENT
  Age: 62 Year
  Sex: Female

DRUGS (1)
  1. OPTIRAY 350 [Suspect]
     Active Substance: IOVERSOL

REACTIONS (4)
  - Urticaria [None]
  - Sneezing [None]
  - Contrast media reaction [None]
  - Pruritus [None]

NARRATIVE: CASE EVENT DATE: 20210708
